FAERS Safety Report 10270404 (Version 1)
Quarter: 2014Q2

REPORT INFORMATION
  Report Type: Spontaneous
  Country: DE (occurrence: None)
  Receive Date: 20140626
  Receipt Date: 20140626
  Transmission Date: 20141212
  Serious: Yes (Hospitalization)
  Sender: FDA-Public Use
  Company Number: IT-ACS-000020

PATIENT
  Age: 56 Year
  Sex: Male

DRUGS (1)
  1. CEFTRIAXONE [Suspect]
     Dosage: 1 X 1 G EVERY DAY INTRAMUSCULAR
     Route: 030
     Dates: start: 20131205, end: 20131205

REACTIONS (4)
  - Blood pressure increased [None]
  - Dyspepsia [None]
  - Palpitations [None]
  - Oedema [None]
